FAERS Safety Report 9374914 (Version 1)
Quarter: 2013Q2

REPORT INFORMATION
  Report Type: Spontaneous
  Country: JP (occurrence: JP)
  Receive Date: 20130628
  Receipt Date: 20130628
  Transmission Date: 20140414
  Serious: Yes (Other)
  Sender: FDA-Public Use
  Company Number: JP-PFIZER INC-2013190198

PATIENT
  Age: 61 Year
  Sex: Male

DRUGS (2)
  1. NORVASC [Suspect]
     Dosage: 2.5 MG, 1X/DAY
     Route: 048
  2. BLOPRESS [Concomitant]
     Dosage: UNK

REACTIONS (1)
  - Renal failure chronic [Unknown]
